FAERS Safety Report 17608832 (Version 1)
Quarter: 2020Q2

REPORT INFORMATION
  Report Type: Report from Study
  Country: NL (occurrence: NL)
  Receive Date: 20200401
  Receipt Date: 20200401
  Transmission Date: 20200713
  Serious: Yes (Hospitalization)
  Sender: FDA-Public Use
  Company Number: NL-TEVA-2020-NL-1215966

PATIENT
  Age: 61 Year
  Sex: Male

DRUGS (7)
  1. DIOVAN [Concomitant]
     Active Substance: VALSARTAN
     Dosage: 1 DOSAGE FORMS DAILY; 160 MG
  2. SYMMETREL [Concomitant]
     Active Substance: AMANTADINE HYDROCHLORIDE
     Dosage: 2 DOSAGE FORMS DAILY; 100MGR
  3. MODIODAL [Concomitant]
     Active Substance: MODAFINIL
     Dosage: 2 DOSAGE FORMS DAILY; 100MGR
  4. METOPROLOL SUCCINAAT [Concomitant]
     Active Substance: METOPROLOL SUCCINATE
     Dosage: 1 DOSAGE FORMS DAILY; 50MGR
  5. TIZANIDINE. [Concomitant]
     Active Substance: TIZANIDINE
     Dosage: 2 DOSAGE FORMS DAILY; 2MGR
  6. COPAXONE [Suspect]
     Active Substance: GLATIRAMER ACETATE
     Indication: MULTIPLE SCLEROSIS
     Dosage: 20 MILLIGRAM/MILLILITERS DAILY;
     Route: 058
     Dates: start: 20051028
  7. ASCAL [Concomitant]
     Dosage: 1 DOSAGE FORMS DAILY; 100MGR

REACTIONS (2)
  - Fall [Recovering/Resolving]
  - Femur fracture [Recovering/Resolving]

NARRATIVE: CASE EVENT DATE: 202001
